FAERS Safety Report 12724900 (Version 1)
Quarter: 2016Q3

REPORT INFORMATION
  Report Type: Other
  Country: US (occurrence: US)
  Receive Date: 20160908
  Receipt Date: 20160908
  Transmission Date: 20161109
  Serious: No
  Sender: FDA-Public Use
  Company Number: US-COL_23293_2016

PATIENT
  Sex: Female

DRUGS (2)
  1. COLGATE TOTAL CLEAN MINT [Suspect]
     Active Substance: SODIUM FLUORIDE\TRICLOSAN
     Indication: PRODUCT USED FOR UNKNOWN INDICATION
     Dosage: FILLS BRUSH FULL/TWO OR MORE TIMES/
     Route: 048
     Dates: start: 20160517, end: 20160524
  2. LIPITOR [Concomitant]
     Active Substance: ATORVASTATIN CALCIUM
     Indication: PRODUCT USED FOR UNKNOWN INDICATION
     Dosage: NI/NI/

REACTIONS (2)
  - Product quality issue [Unknown]
  - Retching [Unknown]

NARRATIVE: CASE EVENT DATE: 20160517
